FAERS Safety Report 20812401 (Version 2)
Quarter: 2022Q2

REPORT INFORMATION
  Report Type: Report from Study
  Country: US (occurrence: US)
  Receive Date: 20220511
  Receipt Date: 20220517
  Transmission Date: 20220721
  Serious: Yes (Other)
  Sender: FDA-Public Use
  Company Number: US-ABBVIE-22K-163-4388997-00

PATIENT
  Sex: Male

DRUGS (1)
  1. VENCLEXTA [Suspect]
     Active Substance: VENETOCLAX
     Indication: Pancytopenia
     Route: 048
     Dates: start: 20210226

REACTIONS (3)
  - Cataract [Unknown]
  - Renal disorder [Unknown]
  - Blood uric acid increased [Unknown]
